FAERS Safety Report 23780783 (Version 1)
Quarter: 2024Q2

REPORT INFORMATION
  Report Type: Spontaneous
  Country: SE (occurrence: SE)
  Receive Date: 20240425
  Receipt Date: 20240425
  Transmission Date: 20240716
  Serious: Yes (Other)
  Sender: FDA-Public Use
  Company Number: None

PATIENT
  Age: 76 Year
  Sex: Female

DRUGS (8)
  1. METOPROLOL SUCCINATE [Concomitant]
     Active Substance: METOPROLOL SUCCINATE
     Indication: Product used for unknown indication
     Dosage: 1X2
     Route: 048
     Dates: start: 20171107
  2. CAREDIN [DESLORATADINE] [Concomitant]
     Indication: Product used for unknown indication
     Dosage: 1X1
     Route: 048
     Dates: start: 20230828
  3. CHOLECALCIFEROL [Concomitant]
     Active Substance: CHOLECALCIFEROL
     Indication: Product used for unknown indication
     Dosage: 1X1
     Route: 048
     Dates: start: 20201009
  4. ENALAPRIL MALEATE [Concomitant]
     Active Substance: ENALAPRIL MALEATE
     Indication: Product used for unknown indication
     Dosage: 2X1
     Route: 048
     Dates: start: 20171107
  5. EZETIMIB STADA [Concomitant]
     Indication: Product used for unknown indication
     Dosage: 1X1
     Route: 048
     Dates: start: 20210720
  6. ASPIRIN [Concomitant]
     Active Substance: ASPIRIN
     Indication: Product used for unknown indication
     Dosage: 1X1
     Route: 048
     Dates: start: 20171107
  7. METFORMIN HYDROCHLORIDE [Concomitant]
     Active Substance: METFORMIN HYDROCHLORIDE
     Indication: Product used for unknown indication
     Dosage: 2+0+1
     Route: 048
     Dates: start: 20230313
  8. OZEMPIC [Suspect]
     Active Substance: SEMAGLUTIDE
     Indication: Diabetes mellitus
     Dosage: 1 INJECTION PER WEEK
     Route: 058
     Dates: start: 20231031, end: 20231204

REACTIONS (1)
  - Pemphigoid [Not Recovered/Not Resolved]

NARRATIVE: CASE EVENT DATE: 20231202
